FAERS Safety Report 6315949-2 (Version None)
Quarter: 2009Q3

REPORT INFORMATION
  Report Type: 
  Country: None (occurrence: None)
  Receive Date: 20090820
  Receipt Date: 20090813
  Transmission Date: 20100115
  Serious: Yes (Other)
  Sender: FDA-Public Use
  Company Number: GB-ROXANE LABORATORIES, INC.-2009-RO-00828RO

PATIENT
  Age: 63 Year
  Sex: Female

DRUGS (6)
  1. LORAZEPAM [Suspect]
     Indication: INSOMNIA
     Dosage: 0.5 MG
  2. TEMAZEPAM [Suspect]
     Indication: INSOMNIA
     Dosage: 10 MG
  3. TEMAZEPAM [Suspect]
     Dosage: 20 MG
  4. ORAMORPH SR [Suspect]
     Indication: INSOMNIA
     Dosage: 10 MG
  5. AMITRIPTYLINE [Suspect]
     Indication: INSOMNIA
     Dosage: 100 MG
  6. AMITRIPTYLINE [Suspect]

REACTIONS (4)
  - INSOMNIA [None]
  - POOR QUALITY SLEEP [None]
  - SLEEP APNOEA SYNDROME [None]
  - SOMNOLENCE [None]
